FAERS Safety Report 11184117 (Version 1)
Quarter: 2015Q2

REPORT INFORMATION
  Report Type: Report from Study
  Country: AU (occurrence: AU)
  Receive Date: 20150612
  Receipt Date: 20150612
  Transmission Date: 20150821
  Serious: Yes (Hospitalization)
  Sender: FDA-Public Use
  Company Number: PHHY2015AU069518

PATIENT
  Sex: Male

DRUGS (1)
  1. CLOZARIL [Suspect]
     Active Substance: CLOZAPINE
     Indication: SCHIZOPHRENIA
     Route: 048
     Dates: start: 20150317, end: 20150414

REACTIONS (4)
  - Electrocardiogram QT prolonged [Unknown]
  - Blood creatine phosphokinase increased [Unknown]
  - Cardiac disorder [Unknown]
  - Tachycardia [Unknown]
